FAERS Safety Report 24110213 (Version 1)
Quarter: 2024Q3

REPORT INFORMATION
  Report Type: Report from Study
  Country: US (occurrence: None)
  Receive Date: 20240718
  Receipt Date: 20240718
  Transmission Date: 20241017
  Serious: Yes (Hospitalization, Other)
  Sender: ASTRAZENECA
  Company Number: 2019SE29003

PATIENT
  Age: 25658 Day
  Sex: Male

DRUGS (1)
  1. IMFINZI [Suspect]
     Active Substance: DURVALUMAB
     Indication: Lung neoplasm malignant
     Route: 042
     Dates: start: 20190205

REACTIONS (20)
  - Malignant neoplasm progression [Not Recovered/Not Resolved]
  - Fall [Recovered/Resolved]
  - Head injury [Recovered/Resolved]
  - Pancreatic carcinoma stage IV [Not Recovered/Not Resolved]
  - Cough [Unknown]
  - Secretion discharge [Unknown]
  - Thyroid disorder [Unknown]
  - Lacrimation increased [Unknown]
  - Eye pain [Unknown]
  - Seasonal allergy [Unknown]
  - Fatigue [Unknown]
  - Eye irritation [Unknown]
  - Eye pruritus [Unknown]
  - Multiple allergies [Unknown]
  - Pain [Unknown]
  - Musculoskeletal stiffness [Unknown]
  - Appetite disorder [Unknown]
  - Nausea [Unknown]
  - Diarrhoea [Unknown]
  - Dizziness [Unknown]

NARRATIVE: CASE EVENT DATE: 20190215
